FAERS Safety Report 9270975 (Version 1)
Quarter: 2013Q2

REPORT INFORMATION
  Report Type: Spontaneous
  Country: US (occurrence: US)
  Receive Date: 20130506
  Receipt Date: 20130506
  Transmission Date: 20140414
  Serious: No
  Sender: FDA-Public Use
  Company Number: US-009507513-1305USA001350

PATIENT
  Age: 68 Year
  Sex: Male

DRUGS (8)
  1. PEGINTRON [Suspect]
     Indication: HEPATITIS C
     Dosage: 150 MCG/.05ML (THERAPY ROUTE - INJECTION)
     Dates: start: 20121212
  2. VICTRELIS [Suspect]
     Dosage: UNK
  3. RIBASPHERE [Suspect]
     Dosage: UNK
  4. AMLODIPINE [Concomitant]
     Dosage: UNK
  5. ALLOPURINOL [Concomitant]
     Dosage: UNK
  6. PROPOXYPHENE [Concomitant]
     Dosage: UNK
  7. ZOLPIDEM TARTRATE [Concomitant]
     Dosage: UNK
  8. Z-PAK [Concomitant]
     Dosage: UNK

REACTIONS (4)
  - Headache [Not Recovered/Not Resolved]
  - Influenza like illness [Not Recovered/Not Resolved]
  - Pyrexia [Not Recovered/Not Resolved]
  - Product quality issue [Unknown]
